FAERS Safety Report 20136986 (Version 3)
Quarter: 2022Q3

REPORT INFORMATION
  Report Type: Spontaneous
  Country: FR (occurrence: FR)
  Receive Date: 20211201
  Receipt Date: 20220830
  Transmission Date: 20221027
  Serious: Yes (Other)
  Sender: FDA-Public Use
  Company Number: FR-BAYER-2021-211067

PATIENT
  Age: 24 Year
  Sex: Female
  Weight: 86.6 kg

DRUGS (7)
  1. CYPROTERONE ACETATE [Suspect]
     Active Substance: CYPROTERONE ACETATE
     Indication: Acne
     Dosage: UNK
     Route: 048
     Dates: start: 2003, end: 201612
  2. CYPROTERONE ACETATE [Suspect]
     Active Substance: CYPROTERONE ACETATE
     Indication: Contraception
  3. CYPROTERONE ACETATE [Suspect]
     Active Substance: CYPROTERONE ACETATE
     Indication: Acne
     Route: 048
  4. CYPROTERONE ACETATE [Suspect]
     Active Substance: CYPROTERONE ACETATE
     Indication: Contraception
  5. ESTRADIOL [Concomitant]
     Active Substance: ESTRADIOL
     Dosage: UNK
     Route: 048
     Dates: start: 20140524
  6. DROSPIRENONE\ETHINYL ESTRADIOL [Suspect]
     Active Substance: DROSPIRENONE\ETHINYL ESTRADIOL
     Dosage: UNK
     Route: 048
     Dates: start: 20070111, end: 20070522
  7. SERTACONAZOLE NITRATE [Concomitant]
     Active Substance: SERTACONAZOLE NITRATE

REACTIONS (11)
  - Meningioma [Recovered/Resolved with Sequelae]
  - Ophthalmoplegia [None]
  - Eyelid ptosis [None]
  - Lacrimation increased [None]
  - Diplopia [None]
  - Mydriasis [None]
  - Dysmenorrhoea [Recovered/Resolved]
  - Weight increased [None]
  - Abnormal withdrawal bleeding [Recovered/Resolved]
  - Acne [None]
  - Off label use [None]

NARRATIVE: CASE EVENT DATE: 20040220
